FAERS Safety Report 8563959-7 (Version None)
Quarter: 2012Q3

REPORT INFORMATION
  Report Type: 
  Country: None (occurrence: None)
  Receive Date: 20120803
  Receipt Date: 20120730
  Transmission Date: 20120928
  Serious: Yes (Other)
  Sender: FDA-Public Use
  Company Number: PHHY2012IL066367

PATIENT
  Sex: Male

DRUGS (1)
  1. EXELON [Suspect]
     Route: 048

REACTIONS (2)
  - CONCOMITANT DISEASE AGGRAVATED [None]
  - CEREBROVASCULAR ACCIDENT [None]
